FAERS Safety Report 26065989 (Version 4)
Quarter: 2025Q4

REPORT INFORMATION
  Report Type: Spontaneous
  Country: JP (occurrence: JP)
  Receive Date: 20251119
  Receipt Date: 20251211
  Transmission Date: 20260118
  Serious: Yes (Hospitalization, Disabling)
  Sender: MALLINCKRODT
  Company Number: JP-MALLINCKRODT-MNK202507224

PATIENT
  Age: 70 Year
  Sex: Male

DRUGS (5)
  1. NITRIC OXIDE [Suspect]
     Active Substance: NITRIC OXIDE
     Indication: Pulmonary hypertension
     Dosage: 20 PPM
     Route: 055
  2. NITRIC OXIDE [Suspect]
     Active Substance: NITRIC OXIDE
     Dosage: 15 PPM
  3. NITRIC OXIDE [Suspect]
     Active Substance: NITRIC OXIDE
     Dosage: 20 PPM
  4. HEPARIN [Concomitant]
     Active Substance: HEPARIN SODIUM
     Dosage: UNKNOWN
  5. MEYLON [Concomitant]
     Active Substance: SODIUM BICARBONATE
     Dosage: UNKNOWN

REACTIONS (5)
  - Retroperitoneal haematoma [Unknown]
  - Acute kidney injury [Unknown]
  - Pulmonary oedema [Unknown]
  - Pulmonary arterial pressure increased [Unknown]
  - Rebound effect [Unknown]
